FAERS Safety Report 20325852 (Version 2)
Quarter: 2022Q2

REPORT INFORMATION
  Report Type: Spontaneous
  Country: DE (occurrence: DE)
  Receive Date: 20220112
  Receipt Date: 20220429
  Transmission Date: 20220721
  Serious: Yes (Death, Other)
  Sender: FDA-Public Use
  Company Number: DE-ROCHE-2987280

PATIENT
  Age: 73 Year
  Sex: Male
  Weight: 60 kg

DRUGS (22)
  1. BEVACIZUMAB [Suspect]
     Active Substance: BEVACIZUMAB
     Indication: Hepatocellular carcinoma
     Dosage: DATE OF LAST APPLICATION PRIOR EVENT: 17/JUN/2021
     Route: 065
     Dates: start: 20210527
  2. ATEZOLIZUMAB [Suspect]
     Active Substance: ATEZOLIZUMAB
     Indication: Hepatocellular carcinoma
     Dosage: DATE OF LAST APPLICATION PRIOR EVENT: 17/JUN/2021
     Route: 065
     Dates: start: 20210527
  3. CANDESARTAN [Concomitant]
     Active Substance: CANDESARTAN
     Dosage: 16 MILLIGRAM
     Route: 048
     Dates: end: 20210629
  4. LOPERAMIDE [Concomitant]
     Active Substance: LOPERAMIDE
     Dosage: 2 MILLIGRAM
     Route: 048
     Dates: end: 20210629
  5. TORSEMIDE [Concomitant]
     Active Substance: TORSEMIDE
     Dosage: 10 MILLIGRAM
     Route: 048
     Dates: end: 20210629
  6. DIHYDRALAZINE SULFATE [Concomitant]
     Active Substance: DIHYDRALAZINE SULFATE
     Dosage: 25 MILLIGRAM
     Route: 048
     Dates: end: 20210629
  7. FOLIC ACID [Concomitant]
     Active Substance: FOLIC ACID
     Dosage: 5 MILLIGRAM
     Route: 048
     Dates: end: 20210629
  8. LERCANIDIPINE [Concomitant]
     Active Substance: LERCANIDIPINE
     Dosage: 20 MILLIGRAM
     Route: 048
     Dates: end: 20210629
  9. APIXABAN [Concomitant]
     Active Substance: APIXABAN
     Dosage: 2.5 MILLIGRAM
     Route: 048
     Dates: end: 20210629
  10. MORPHINE [Concomitant]
     Active Substance: MORPHINE
     Dosage: 20 MILLIGRAM
     Route: 048
     Dates: end: 20210629
  11. HYDROCHLOROTHIAZIDE [Concomitant]
     Active Substance: HYDROCHLOROTHIAZIDE
     Dosage: 12.5 MILLIGRAM
     Route: 048
     Dates: end: 20210629
  12. MOXONIDINE [Concomitant]
     Active Substance: MOXONIDINE
     Dosage: 0.4 MILLIGRAM
     Route: 048
     Dates: end: 20210629
  13. ONDANSETRON [Concomitant]
     Active Substance: ONDANSETRON
     Dosage: 8 MILLIGRAM
     Route: 048
     Dates: end: 20210629
  14. POLYETHYLENE GLYCOLS [Concomitant]
     Active Substance: POLYETHYLENE GLYCOLS
     Dosage: 1 BEUTEL
     Route: 048
     Dates: end: 20210629
  15. DOXAZOSIN [Concomitant]
     Active Substance: DOXAZOSIN MESYLATE
     Dosage: 4 MILLIGRAM
     Route: 048
     Dates: end: 20210629
  16. SPIRONOLACTONE [Concomitant]
     Active Substance: SPIRONOLACTONE
     Dosage: 100 MILLIGRAM
     Route: 048
     Dates: end: 20210629
  17. MELATONIN [Concomitant]
     Active Substance: MELATONIN
     Dosage: 2 MILLIGRAM
     Route: 048
     Dates: end: 20210629
  18. LORAZEPAM [Concomitant]
     Active Substance: LORAZEPAM
     Dosage: 1 MILLIGRAM
     Route: 048
     Dates: end: 20210629
  19. PANTOPRAZOLE [Concomitant]
     Active Substance: PANTOPRAZOLE
     Dosage: 40 MILLIGRAM
     Route: 048
     Dates: end: 20210629
  20. BISOPROLOL [Concomitant]
     Active Substance: BISOPROLOL
     Dosage: 2.5 MILLIGRAM
     Route: 048
     Dates: end: 20210629
  21. MCP [Concomitant]
     Active Substance: METOCLOPRAMIDE HYDROCHLORIDE
     Dosage: 10 MILLIGRAM
     Route: 048
     Dates: end: 20210629
  22. MELPERONE [Concomitant]
     Active Substance: MELPERONE
     Dosage: 25 MILLIGRAM
     Route: 048
     Dates: end: 20210629

REACTIONS (1)
  - Renal failure [Fatal]

NARRATIVE: CASE EVENT DATE: 20210625
